FAERS Safety Report 15587688 (Version 1)
Quarter: 2018Q4

REPORT INFORMATION
  Report Type: Report from Study
  Country: EG (occurrence: EG)
  Receive Date: 20181105
  Receipt Date: 20181105
  Transmission Date: 20190205
  Serious: Yes (Other)
  Sender: FDA-Public Use
  Company Number: PHHY2018EG144266

PATIENT
  Age: 23 Year
  Sex: Male

DRUGS (3)
  1. ULTRACILLIN [Concomitant]
     Indication: INFLAMMATION
  2. ULTRACILLIN [Concomitant]
     Indication: CHEST PAIN
     Dosage: 1.5 G, 6 DF/3 DAYS
     Route: 065
  3. GILENYA [Suspect]
     Active Substance: FINGOLIMOD HYDROCHLORIDE
     Indication: MULTIPLE SCLEROSIS
     Dosage: 0.5 MG, QD
     Route: 048
     Dates: start: 201807

REACTIONS (2)
  - Chest pain [Not Recovered/Not Resolved]
  - Inflammation [Not Recovered/Not Resolved]

NARRATIVE: CASE EVENT DATE: 201810
